FAERS Safety Report 25800637 (Version 2)
Quarter: 2025Q4

REPORT INFORMATION
  Report Type: Spontaneous
  Country: JP (occurrence: None)
  Receive Date: 20250915
  Receipt Date: 20251013
  Transmission Date: 20260118
  Serious: Yes (Other)
  Sender: ORION
  Company Number: JP-Orion Corporation ORION PHARMA-ENT 2025-0041

PATIENT
  Age: 90 Year
  Sex: Female

DRUGS (13)
  1. COMTAN [Suspect]
     Active Substance: ENTACAPONE
     Indication: Parkinson^s disease
     Dosage: STRENGTH: 100 MG, 1 TABLET/DOSE AFTER EVERY MEAL, HAD TAKEN DRUG SINCE AT LEAST BEFORE 2020, TAKEN F
  2. TIAPRIDE [Suspect]
     Active Substance: TIAPRIDE
     Indication: Product used for unknown indication
  3. CARBIDOPA\LEVODOPA [Suspect]
     Active Substance: CARBIDOPA\LEVODOPA
     Indication: Parkinson^s disease
  4. ELOBIXIBAT [Concomitant]
     Active Substance: ELOBIXIBAT
  5. LANSOPRAZOLE [Concomitant]
     Active Substance: LANSOPRAZOLE
  6. DONEPEZIL [Concomitant]
     Active Substance: DONEPEZIL
  7. FERROUS CITRATE [Concomitant]
     Active Substance: FERROUS CITRATE
  8. AMLODIPINE [Concomitant]
     Active Substance: AMLODIPINE BESYLATE
  9. SPIRONOLACTONE [Concomitant]
     Active Substance: SPIRONOLACTONE
  10. MOSAPRIDE [Concomitant]
     Active Substance: MOSAPRIDE
  11. MAGNESIUM OXIDE [Concomitant]
     Active Substance: MAGNESIUM OXIDE
  12. PRAMIPEXOLE [Concomitant]
     Active Substance: PRAMIPEXOLE
  13. RAMELTEON [Concomitant]
     Active Substance: RAMELTEON

REACTIONS (2)
  - Neuroleptic malignant syndrome [Recovered/Resolved]
  - Contraindicated product administered [Unknown]
